FAERS Safety Report 7156681-5 (Version None)
Quarter: 2010Q4

REPORT INFORMATION
  Report Type: 
  Country: None (occurrence: None)
  Receive Date: 20101214
  Receipt Date: 20091125
  Transmission Date: 20110411
  Serious: No
  Sender: FDA-Public Use
  Company Number: US-ASTRAZENECA-2009SE28823

PATIENT
  Age: 21405 Day
  Sex: Male
  Weight: 79.4 kg

DRUGS (3)
  1. CRESTOR [Suspect]
     Route: 048
     Dates: start: 20091118
  2. LISINOPRIL [Concomitant]
     Indication: BLOOD PRESSURE
  3. TYLENOL (CAPLET) [Concomitant]
     Indication: PAIN

REACTIONS (4)
  - ASTHENIA [None]
  - FAECES DISCOLOURED [None]
  - JOINT STIFFNESS [None]
  - MUSCULOSKELETAL STIFFNESS [None]
